FAERS Safety Report 9028169 (Version 1)
Quarter: 2013Q1

REPORT INFORMATION
  Report Type: Spontaneous
  Country: US (occurrence: None)
  Receive Date: 20130115
  Receipt Date: 20130115
  Transmission Date: 20140127
  Serious: Yes (Other)
  Sender: FDA-Public Use
  Company Number: None

PATIENT
  Age: 31 Year
  Sex: Female
  Weight: 90.72 kg

DRUGS (2)
  1. EFFEXOR XR [Suspect]
     Indication: BIPOLAR DISORDER
     Dates: start: 20001001, end: 20050415
  2. EFFEXOR XR [Suspect]
     Indication: DEPRESSION
     Dates: start: 20001001, end: 20050415

REACTIONS (17)
  - Drug withdrawal syndrome [None]
  - Dizziness [None]
  - Nausea [None]
  - Vertigo [None]
  - Paraesthesia [None]
  - Impaired driving ability [None]
  - Fatigue [None]
  - Disturbance in attention [None]
  - Feeling abnormal [None]
  - Panic reaction [None]
  - Suicidal ideation [None]
  - Achlorhydria [None]
  - Malabsorption [None]
  - Diarrhoea [None]
  - Weight decreased [None]
  - Anaemia [None]
  - Hepatic function abnormal [None]
